FAERS Safety Report 6446409-6 (Version None)
Quarter: 2009Q4

REPORT INFORMATION
  Report Type: 
  Country: None (occurrence: None)
  Receive Date: 20091119
  Receipt Date: 20091105
  Transmission Date: 20100525
  Serious: Yes (Hospitalization)
  Sender: FDA-Public Use
  Company Number: PHHY2009ES48202

PATIENT
  Age: 85 Year
  Sex: Female

DRUGS (6)
  1. EXFORGE [Suspect]
     Dosage: 2 DF, BID
     Route: 048
     Dates: start: 20090529, end: 20090531
  2. ALDACTONE [Interacting]
     Dosage: 25 MG, QD
     Route: 048
     Dates: start: 20090529, end: 20090531
  3. DIGOXIN [Concomitant]
     Indication: ATRIAL FIBRILLATION
     Dosage: 0.25 MG (HALF DF ONCE DAILY)
     Route: 048
  4. CARDURA [Concomitant]
     Indication: ATRIAL FIBRILLATION
     Dosage: 4 MG, QD
     Route: 048
     Dates: start: 20090529
  5. LANZOL [Concomitant]
     Dosage: 1 DF, QD
     Route: 048
     Dates: start: 20090529
  6. SEGURIL [Concomitant]
     Dosage: 40 MG (HALF DF TWICE DAILY)
     Route: 048
     Dates: start: 20090529

REACTIONS (3)
  - DRUG INTERACTION [None]
  - HYPERKALAEMIA [None]
  - HYPONATRAEMIA [None]
